FAERS Safety Report 16430635 (Version 1)
Quarter: 2019Q2

REPORT INFORMATION
  Report Type: Spontaneous
  Country: RO (occurrence: RO)
  Receive Date: 20190614
  Receipt Date: 20190614
  Transmission Date: 20190711
  Serious: Yes (Hospitalization)
  Sender: FDA-Public Use
  Company Number: RO-ABBVIE-19K-135-2816826-00

PATIENT
  Sex: Female

DRUGS (3)
  1. HUMIRA [Suspect]
     Active Substance: ADALIMUMAB
     Indication: COLITIS ULCERATIVE
     Route: 058
     Dates: start: 2016
  2. CORTISONE [Concomitant]
     Active Substance: CORTISONE\HYDROCORTISONE
     Indication: PRODUCT USED FOR UNKNOWN INDICATION
  3. HUMIRA [Suspect]
     Active Substance: ADALIMUMAB
     Route: 058
     Dates: start: 201905

REACTIONS (12)
  - Taste disorder [Recovered/Resolved]
  - Joint noise [Recovered/Resolved]
  - Hypersensitivity [Unknown]
  - Device issue [Not Recovered/Not Resolved]
  - Rhinorrhoea [Recovered/Resolved]
  - Oropharyngeal discomfort [Recovered/Resolved]
  - Injection site hypersensitivity [Recovered/Resolved]
  - Asthmatic crisis [Recovered/Resolved]
  - Dry skin [Not Recovered/Not Resolved]
  - Arthralgia [Recovered/Resolved]
  - Sneezing [Recovered/Resolved]
  - Injection site haematoma [Recovered/Resolved]

NARRATIVE: CASE EVENT DATE: 2016
